FAERS Safety Report 5934989-6 (Version None)
Quarter: 2008Q4

REPORT INFORMATION
  Report Type: 
  Country: None (occurrence: None)
  Receive Date: 20081029
  Receipt Date: 20081029
  Transmission Date: 20090506
  Serious: No
  Sender: FDA-Public Use
  Company Number: None

PATIENT
  Age: 66 Year
  Sex: Male
  Weight: 59 kg

DRUGS (3)
  1. GAMUNEX [Suspect]
     Indication: HYPOGAMMAGLOBULINAEMIA
     Dosage: 35GM IV Q2WK
     Route: 042
     Dates: start: 20081024
  2. GAMUNEX [Suspect]
  3. GAMUNEX [Suspect]

REACTIONS (1)
  - PYREXIA [None]
